FAERS Safety Report 11593907 (Version 1)
Quarter: 2015Q4

REPORT INFORMATION
  Report Type: Spontaneous
  Country: US (occurrence: US)
  Receive Date: 20151005
  Receipt Date: 20151005
  Transmission Date: 20160304
  Serious: Yes (Death, Life-Threatening, Hospitalization)
  Sender: FDA-Public Use
  Company Number: US-BANPHARM-20154270

PATIENT
  Age: 15 Year
  Sex: Female
  Weight: 41 kg

DRUGS (1)
  1. LIDOCAINE HYDROCHLORIDE UNKNOWN PRODUCT [Suspect]
     Active Substance: LIDOCAINE HYDROCHLORIDE
     Dosage: 2%, 100ML BOTTLE,

REACTIONS (3)
  - Cardiac arrest [Recovered/Resolved]
  - Brain death [Fatal]
  - Seizure [Recovered/Resolved]
